FAERS Safety Report 10672772 (Version 4)
Quarter: 2015Q1

REPORT INFORMATION
  Report Type: Report from Study
  Country: US (occurrence: US)
  Receive Date: 20141223
  Receipt Date: 20150126
  Transmission Date: 20150720
  Serious: Yes (Other)
  Sender: FDA-Public Use
  Company Number: US-GILEAD-2014-0127701

PATIENT
  Age: 63 Year
  Sex: Female

DRUGS (1)
  1. TENOFOVIR DISOPROXIL FUMARATE [Suspect]
     Active Substance: TENOFOVIR DISOPROXIL FUMARATE
     Indication: CHRONIC HEPATITIS B
     Dosage: 300 MG, UNK
     Route: 048

REACTIONS (4)
  - Mastitis [Unknown]
  - Neoplasm malignant [Unknown]
  - Breast cancer stage II [Not Recovered/Not Resolved]
  - Malaise [Unknown]
